FAERS Safety Report 23897373 (Version 1)
Quarter: 2024Q2

REPORT INFORMATION
  Report Type: Spontaneous
  Country: CN (occurrence: CN)
  Receive Date: 20240524
  Receipt Date: 20240524
  Transmission Date: 20240716
  Serious: Yes (Hospitalization)
  Sender: FDA-Public Use
  Company Number: CN-SHANGHAI JUNSHI BIOSCIENCES CO., LTD.-CN2024010089

PATIENT

DRUGS (6)
  1. TORIPALIMAB [Suspect]
     Active Substance: TORIPALIMAB
     Indication: Gastric cancer
     Dosage: 80 MG (D1), ONCE EVERY 3 WEEKS
     Route: 041
     Dates: start: 20240410, end: 20240410
  2. TORIPALIMAB [Suspect]
     Active Substance: TORIPALIMAB
     Indication: Colon neoplasm
  3. OXALIPLATIN [Suspect]
     Active Substance: OXALIPLATIN
     Indication: Gastric cancer
     Dosage: 70 MG (D1), ONCE EVERY 3 WEEKS
     Route: 041
     Dates: start: 20240410, end: 20240410
  4. OXALIPLATIN [Suspect]
     Active Substance: OXALIPLATIN
     Indication: Colon neoplasm
  5. CAPECITABINE [Suspect]
     Active Substance: CAPECITABINE
     Indication: Gastric cancer
     Dosage: 1G (D1-D4, ONCE IN THE MORNING, ONCE IN THE EVENING, 3 WEEKS AS A CYCLE)
     Route: 048
     Dates: start: 20240410, end: 20240423
  6. CAPECITABINE [Suspect]
     Active Substance: CAPECITABINE
     Indication: Colon neoplasm

REACTIONS (2)
  - Haematuria [Unknown]
  - Off label use [Unknown]

NARRATIVE: CASE EVENT DATE: 20240410
